FAERS Safety Report 7430215-X (Version None)
Quarter: 2011Q2

REPORT INFORMATION
  Report Type: 
  Country: None (occurrence: None)
  Receive Date: 20110421
  Receipt Date: 20100609
  Transmission Date: 20111010
  Serious: No
  Sender: FDA-Public Use
  Company Number: US-ASTRAZENECA-2010SE26723

PATIENT
  Age: 59 Year
  Sex: Male
  Weight: 72.6 kg

DRUGS (2)
  1. TOPROL-XL [Suspect]
     Indication: HYPERTENSION
     Route: 048
     Dates: start: 20030101
  2. ASPIRIN [Concomitant]

REACTIONS (3)
  - FEELING ABNORMAL [None]
  - WOUND INFECTION [None]
  - NERVOUSNESS [None]
